FAERS Safety Report 17149438 (Version 2)
Quarter: 2019Q4

REPORT INFORMATION
  Report Type: Spontaneous
  Country: FR (occurrence: FR)
  Receive Date: 20191213
  Receipt Date: 20191219
  Transmission Date: 20200122
  Serious: Yes (Death, Life-Threatening, Hospitalization, Other)
  Sender: FDA-Public Use
  Company Number: FR-ACTELION-A-CH2019-199195

PATIENT
  Age: 18 Year
  Sex: Female

DRUGS (5)
  1. ATORVASTATIN [Concomitant]
     Active Substance: ATORVASTATIN
     Dosage: 10 MG, OD
  2. LEVOTHYROXINE SODIUM. [Concomitant]
     Active Substance: LEVOTHYROXINE SODIUM
     Dosage: 50 MCG, OD
  3. CIRCADIN [Concomitant]
     Active Substance: MELATONIN
     Dosage: 2 MG, OD
  4. BOSENTAN. [Suspect]
     Active Substance: BOSENTAN
     Indication: PULMONARY ARTERIAL HYPERTENSION
     Dosage: 250 MG, OD
     Route: 048
  5. ADCIRCA [Suspect]
     Active Substance: TADALAFIL
     Indication: PULMONARY ARTERIAL HYPERTENSION
     Dosage: 2 DF, OD
     Route: 065
     Dates: end: 20191118

REACTIONS (9)
  - Cardiac failure [Fatal]
  - Condition aggravated [Unknown]
  - Acute respiratory distress syndrome [Unknown]
  - Acute respiratory failure [Fatal]
  - Acute kidney injury [Unknown]
  - Haemodynamic instability [Fatal]
  - Cardio-respiratory arrest [Fatal]
  - Shock [Unknown]
  - Pulmonary arterial hypertension [Unknown]
